FAERS Safety Report 7260740-6 (Version None)
Quarter: 2011Q1

REPORT INFORMATION
  Report Type: 
  Country: None (occurrence: None)
  Receive Date: 20110130
  Receipt Date: 20101222
  Transmission Date: 20110831
  Serious: No
  Sender: FDA-Public Use
  Company Number: US-ABBOTT-10P-163-0693454-00

PATIENT
  Age: 50 Year
  Sex: Male

DRUGS (3)
  1. LOSARTAN POTASSIUM [Concomitant]
     Indication: BLOOD PRESSURE
  2. HUMIRA [Suspect]
     Indication: PSORIASIS
     Dates: start: 20101118, end: 20101126
  3. VERAPAMIL [Concomitant]
     Indication: HYPERTENSION

REACTIONS (2)
  - DRUG DOSE OMISSION [None]
  - HEADACHE [None]
